FAERS Safety Report 9674300 (Version 2)
Quarter: 2013Q4

REPORT INFORMATION
  Report Type: Spontaneous
  Country: US (occurrence: US)
  Receive Date: 20131107
  Receipt Date: 20131107
  Transmission Date: 20140711
  Serious: Yes (Hospitalization)
  Sender: FDA-Public Use
  Company Number: US-BIOGENIDEC-2013BI100095

PATIENT
  Age: 50 Year
  Sex: Female

DRUGS (13)
  1. AVONEX [Suspect]
     Indication: MULTIPLE SCLEROSIS
     Route: 030
     Dates: start: 20040601
  2. AVONEX [Suspect]
     Indication: MULTIPLE SCLEROSIS
     Route: 030
     Dates: start: 20110420
  3. B-12 [Concomitant]
  4. BABY ASPIRIN [Concomitant]
  5. COLACE [Concomitant]
  6. FISH OIL [Concomitant]
  7. IBUPROFEN [Concomitant]
  8. KEFLEX [Concomitant]
  9. MECLIZINE HCL [Concomitant]
  10. SIMVASTATIN [Concomitant]
  11. TYLENOL [Concomitant]
  12. VALIUM [Concomitant]
  13. VITAMIN D [Concomitant]

REACTIONS (1)
  - Intervertebral disc protrusion [Not Recovered/Not Resolved]
